FAERS Safety Report 7609537-5 (Version None)
Quarter: 2011Q3

REPORT INFORMATION
  Report Type: 
  Country: None (occurrence: None)
  Receive Date: 20110714
  Receipt Date: 20110704
  Transmission Date: 20111222
  Serious: Yes (Hospitalization, Other)
  Sender: FDA-Public Use
  Company Number: JP-UCBSA-018472

PATIENT
  Sex: Female

DRUGS (20)
  1. CERTOLIZUMAB PEGOL [Suspect]
     Indication: RHEUMATOID ARTHRITIS
     Dosage: RA0006: WEEKS 0 TO 4.
     Route: 058
     Dates: start: 20090723, end: 20090101
  2. DICLOFENAC SODIUM [Concomitant]
     Dates: start: 20100108
  3. ELCATONIN [Concomitant]
     Dates: start: 20100121
  4. HIRUDOID [Concomitant]
     Dosage: BEDTIME DAILY; QS
     Dates: start: 20100519, end: 20100909
  5. DEXAMETHASONE PROPIONATE [Concomitant]
     Dosage: BEDTIME DAILY; QS
     Dates: start: 20100519, end: 20100909
  6. BESOFTEN [Concomitant]
     Dosage: DOSE:SUFFICIENT QUANTITY. FORM:LOTION
     Dates: start: 20100803, end: 20100909
  7. CERTOLIZUMAB PEGOL [Suspect]
     Route: 058
     Dates: start: 20100204, end: 20100819
  8. PREDNISOLONE [Concomitant]
     Dates: start: 20081219
  9. REBAMIPIDE [Concomitant]
     Indication: GASTRIC ULCER HAEMORRHAGE
     Dates: start: 20090220, end: 20100915
  10. L-MENTHOL [Concomitant]
     Dosage: BEDTIME DAILY; QS
     Dates: start: 20100519, end: 20100909
  11. CANDESARTAN CILEXETIL [Concomitant]
     Dates: start: 20100412
  12. BETAMETHASONE VALERATE_GENTAMICIN [Concomitant]
     Dosage: ADEQUATE DOSE
     Dates: start: 20100407, end: 20100909
  13. DICLOFENAC SODIUM [Concomitant]
     Dosage: ADEQUATE DOSE
     Dates: start: 20090317
  14. FEXOFENADINE HCL [Concomitant]
     Dates: start: 20100524, end: 20100909
  15. AROTINOLOL HYDROCHLORIDE [Concomitant]
     Dates: start: 20050805
  16. CERTOLIZUMAB PEGOL [Suspect]
     Dosage: RA0006: WEEKS 6 TO 22
     Route: 058
     Dates: start: 20100101, end: 20100121
  17. ALENDRONATE SODIUM [Concomitant]
     Dates: start: 20100123
  18. INDOMETHACIN [Concomitant]
     Dosage: ADEQUATE DOSE
     Dates: start: 20090512
  19. FAMOTIDINE [Concomitant]
     Dates: start: 20100108
  20. SULFASALAZINE [Concomitant]
     Dates: start: 20100529

REACTIONS (1)
  - NON-HODGKIN'S LYMPHOMA STAGE III [None]
